FAERS Safety Report 7422956-5 (Version None)
Quarter: 2011Q2

REPORT INFORMATION
  Report Type: 
  Country: None (occurrence: None)
  Receive Date: 20110419
  Receipt Date: 20110406
  Transmission Date: 20111010
  Serious: Yes (Hospitalization)
  Sender: FDA-Public Use
  Company Number: US-AMGEN-USASP2011018311

PATIENT
  Age: 47 Year
  Sex: Male

DRUGS (1)
  1. ENBREL [Suspect]
     Indication: RHEUMATOID ARTHRITIS
     Dosage: 50 MG, QWK
     Dates: start: 20060501, end: 20100801

REACTIONS (8)
  - LOCALISED INFECTION [None]
  - FIBULA FRACTURE [None]
  - ROAD TRAFFIC ACCIDENT [None]
  - INFECTION [None]
  - LIMB OPERATION [None]
  - TIBIA FRACTURE [None]
  - RHEUMATOID ARTHRITIS [None]
  - KNEE OPERATION [None]
